FAERS Safety Report 6473722-9 (Version None)
Quarter: 2009Q4

REPORT INFORMATION
  Report Type: 
  Country: None (occurrence: None)
  Receive Date: 20091204
  Receipt Date: 20091126
  Transmission Date: 20100525
  Serious: Yes (Other)
  Sender: FDA-Public Use
  Company Number: JP-JNJFOC-20091006986

PATIENT
  Sex: Male

DRUGS (1)
  1. CRAVIT [Suspect]
     Indication: ANTIINFLAMMATORY THERAPY
     Route: 048
     Dates: start: 20091014, end: 20091014

REACTIONS (2)
  - DYSPNOEA [None]
  - RASH GENERALISED [None]
